FAERS Safety Report 24255907 (Version 2)
Quarter: 2024Q3

REPORT INFORMATION
  Report Type: Spontaneous
  Country: US (occurrence: US)
  Receive Date: 20240827
  Receipt Date: 20240904
  Transmission Date: 20241017
  Serious: No
  Sender: PFIZER
  Company Number: US-PFIZER INC-202400244142

PATIENT
  Age: 64 Year
  Sex: Male

DRUGS (2)
  1. INLYTA [Suspect]
     Active Substance: AXITINIB
     Indication: Renal cell carcinoma
     Dosage: 5 MG, 1X/DAY
  2. INLYTA [Suspect]
     Active Substance: AXITINIB
     Dosage: 7 MG, 1X/DAY

REACTIONS (2)
  - Neoplasm progression [Unknown]
  - Off label use [Unknown]
